FAERS Safety Report 14532995 (Version 1)
Quarter: 2018Q1

REPORT INFORMATION
  Report Type: Spontaneous
  Country: US (occurrence: US)
  Receive Date: 20180215
  Receipt Date: 20180215
  Transmission Date: 20180509
  Serious: Yes (Other)
  Sender: FDA-Public Use
  Company Number: US-ASTRAZENECA-2018SE16926

PATIENT
  Sex: Male
  Weight: 100.2 kg

DRUGS (8)
  1. METOPROLOL TARTRATE. [Suspect]
     Active Substance: METOPROLOL TARTRATE
     Route: 065
  2. GLUCOSAMINE [Concomitant]
     Active Substance: GLUCOSAMINE
  3. ABILIFY [Suspect]
     Active Substance: ARIPIPRAZOLE
     Indication: BIPOLAR DISORDER
     Route: 065
     Dates: end: 2017
  4. SEROQUEL [Suspect]
     Active Substance: QUETIAPINE FUMARATE
     Route: 048
     Dates: start: 2017, end: 2017
  5. COQ10 [Concomitant]
     Active Substance: UBIDECARENONE
     Indication: MUSCLE DISORDER
  6. ABILIFY [Suspect]
     Active Substance: ARIPIPRAZOLE
     Indication: BIPOLAR DISORDER
     Dosage: LOWEST DOSE, UNKNOWN
     Route: 065
  7. LATUDA [Suspect]
     Active Substance: LURASIDONE HYDROCHLORIDE
     Route: 065
     Dates: start: 2017, end: 2017
  8. CRESTOR [Suspect]
     Active Substance: ROSUVASTATIN CALCIUM
     Route: 048

REACTIONS (18)
  - Insomnia [Unknown]
  - Restless legs syndrome [Unknown]
  - Wrong technique in product usage process [Unknown]
  - Suicidal ideation [Recovered/Resolved]
  - Restlessness [Unknown]
  - Nausea [Unknown]
  - Dyskinesia [Unknown]
  - Weight increased [Unknown]
  - Diarrhoea [Unknown]
  - Malaise [Unknown]
  - Pain [Unknown]
  - Confusional state [Unknown]
  - Mental impairment [Unknown]
  - Musculoskeletal stiffness [Unknown]
  - Myalgia [Unknown]
  - Hypersomnia [Unknown]
  - Sluggishness [Unknown]
  - Memory impairment [Unknown]
